FAERS Safety Report 7701524-1 (Version None)
Quarter: 2011Q3

REPORT INFORMATION
  Report Type: 
  Country: None (occurrence: None)
  Receive Date: 20110822
  Receipt Date: 20100618
  Transmission Date: 20111222
  Serious: No
  Sender: FDA-Public Use
  Company Number: US-BAYER-201027212NA

PATIENT
  Age: 39 Year
  Sex: Female

DRUGS (1)
  1. ANGELIQ [Suspect]
     Indication: HOT FLUSH
     Dosage: 0.5MG/1.0MG
     Route: 048
     Dates: start: 20100601

REACTIONS (4)
  - VAGINAL HAEMORRHAGE [None]
  - ALOPECIA [None]
  - ABDOMINAL DISTENSION [None]
  - NAUSEA [None]
